FAERS Safety Report 8790504 (Version 1)
Quarter: 2012Q4

REPORT INFORMATION
  Report Type: Spontaneous
  Country: SG (occurrence: None)
  Receive Date: 20120830
  Receipt Date: 20120830
  Transmission Date: 20130627
  Serious: Yes (Other)
  Sender: FDA-Public Use
  Company Number: AESGP201200426

PATIENT
  Age: 9 Month
  Sex: Male

DRUGS (2)
  1. HYPERHEP B [Suspect]
     Indication: HEPATITIS B EXPOSURE
     Route: 030
     Dates: start: 20110909, end: 20110909
  2. ENGERIX-B [Suspect]
     Indication: HEPATITIS B EXPOSURE
     Route: 030
     Dates: start: 20110911

REACTIONS (3)
  - Drug ineffective [None]
  - Vertical infection transmission [None]
  - Hepatitis B virus test positive [None]
